FAERS Safety Report 18338711 (Version 3)
Quarter: 2020Q4

REPORT INFORMATION
  Report Type: Spontaneous
  Country: JP (occurrence: JP)
  Receive Date: 20201002
  Receipt Date: 20201009
  Transmission Date: 20210113
  Serious: Yes (Hospitalization, Other)
  Sender: FDA-Public Use
  Company Number: JP-PFIZER INC-2020338392

PATIENT
  Age: 56 Year
  Sex: Female

DRUGS (2)
  1. RHEUMATREX [Suspect]
     Active Substance: METHOTREXATE SODIUM
     Dosage: 4 MG, WEEKLY
     Route: 048
  2. ENBREL [Suspect]
     Active Substance: ETANERCEPT
     Dosage: 25 MG, WEEKLY
     Route: 058

REACTIONS (3)
  - Pelvic fracture [Unknown]
  - Post procedural infection [Recovered/Resolved]
  - Bacterial infection [Recovered/Resolved]
